FAERS Safety Report 9129576 (Version 1)
Quarter: 2013Q1

REPORT INFORMATION
  Report Type: Report from Study
  Country: US (occurrence: US)
  Receive Date: 20130228
  Receipt Date: 20130228
  Transmission Date: 20140127
  Serious: No
  Sender: FDA-Public Use
  Company Number: US-ABBOTT-12P-163-0976013-00

PATIENT
  Age: 50 None
  Sex: Male
  Weight: 77.18 kg

DRUGS (5)
  1. ANDROGEL 1.62% [Suspect]
     Indication: BLOOD TESTOSTERONE DECREASED
     Dosage: 4 PUMPS
     Route: 061
     Dates: start: 20110920, end: 20120825
  2. ANDROGEL 1.62% [Suspect]
     Dosage: 4 PUMPS
     Route: 061
     Dates: end: 20130128
  3. ANDROGEL 1.62% [Suspect]
     Dosage: 4 PUMPS
     Route: 061
  4. METHADONE [Concomitant]
     Indication: PAIN
  5. XANAX [Concomitant]
     Indication: ANXIETY

REACTIONS (7)
  - Feeling abnormal [Not Recovered/Not Resolved]
  - Asthenia [Not Recovered/Not Resolved]
  - Pain [Not Recovered/Not Resolved]
  - Blood testosterone decreased [Unknown]
  - Fatigue [Unknown]
  - Fatigue [Unknown]
  - Muscle atrophy [Unknown]
